FAERS Safety Report 6887929-X (Version None)
Quarter: 2010Q3

REPORT INFORMATION
  Report Type: 
  Country: None (occurrence: None)
  Receive Date: 20100730
  Receipt Date: 20100720
  Transmission Date: 20110219
  Serious: Yes (Other)
  Sender: FDA-Public Use
  Company Number: A0785682A

PATIENT
  Age: 44 Year
  Sex: Female
  Weight: 91.8 kg

DRUGS (9)
  1. AVANDAMET [Suspect]
     Indication: TYPE 2 DIABETES MELLITUS
     Route: 048
     Dates: start: 20050831, end: 20060112
  2. AMBIEN [Concomitant]
  3. CLARINEX [Concomitant]
  4. LIPITOR [Concomitant]
  5. PAMELOR [Concomitant]
  6. RHINOCORT [Concomitant]
  7. TAZORAC [Concomitant]
  8. VOLTAREN [Concomitant]
  9. ZESTRIL [Concomitant]

REACTIONS (11)
  - ARTERIOSCLEROSIS [None]
  - BLOOD CHOLESTEROL INCREASED [None]
  - BLOOD TRIGLYCERIDES INCREASED [None]
  - CARDIAC IMAGING PROCEDURE ABNORMAL [None]
  - CEREBROVASCULAR ACCIDENT [None]
  - CHEST DISCOMFORT [None]
  - CHEST PAIN [None]
  - HYPERTENSION [None]
  - LABORATORY TEST INTERFERENCE [None]
  - OEDEMA [None]
  - PERIPHERAL VASCULAR DISORDER [None]
